FAERS Safety Report 4995956-2 (Version None)
Quarter: 2006Q2

REPORT INFORMATION
  Report Type: 
  Country: None (occurrence: None)
  Receive Date: 20060508
  Receipt Date: 20050706
  Transmission Date: 20061013
  Serious: Yes (Death)
  Sender: FDA-Public Use
  Company Number: US-MERCK-0507USA01017

PATIENT
  Age: 58 Year
  Sex: Female

DRUGS (29)
  1. VIOXX [Suspect]
     Indication: ARTHRITIS
     Route: 048
     Dates: start: 19990806, end: 20000701
  2. VIOXX [Suspect]
     Indication: ARTHRALGIA
     Route: 048
     Dates: start: 19990806, end: 20000701
  3. BEXTRA [Suspect]
     Route: 065
  4. CELEBREX [Suspect]
     Route: 065
  5. KLOR-CON [Concomitant]
     Route: 065
  6. ZYLOPRIM [Concomitant]
     Route: 065
  7. AVANDIA [Concomitant]
     Route: 065
  8. ALBUTEROL [Concomitant]
     Route: 065
  9. LONOX [Concomitant]
     Route: 065
  10. THYROZOL [Concomitant]
     Route: 065
  11. LASIX [Concomitant]
     Route: 065
  12. ATROPINE SULFATE AND DIPHENOXYLATE HYDROCHLORIDE [Concomitant]
     Route: 065
  13. EFFEXOR [Concomitant]
     Route: 065
  14. FUROSEMIDE [Concomitant]
     Route: 065
  15. ALBUTEROL [Concomitant]
     Route: 065
  16. LEVOXYL [Concomitant]
     Route: 065
  17. RANITIDINE [Concomitant]
     Route: 065
  18. ZESTRIL [Concomitant]
     Route: 065
  19. NOVOLIN [Concomitant]
     Route: 065
  20. NOVOLIN R [Concomitant]
     Route: 065
  21. ANGITRIT [Concomitant]
     Route: 065
  22. METAPROTERENOL SULFATE [Concomitant]
     Route: 065
  23. PRAVACHOL [Concomitant]
     Route: 065
  24. REZULIN [Concomitant]
     Route: 065
  25. CEPHALEXIN [Concomitant]
     Route: 065
  26. CIPRO [Concomitant]
     Route: 065
  27. MAGNOLIA [Concomitant]
     Route: 065
  28. LOMOTIL [Concomitant]
     Route: 065
  29. TYLENOL (CAPLET) [Concomitant]
     Route: 065

REACTIONS (7)
  - CARDIAC FAILURE CONGESTIVE [None]
  - CAROTID ARTERY DISEASE [None]
  - CEREBROVASCULAR ACCIDENT [None]
  - DEATH [None]
  - DIALYSIS [None]
  - RENAL DISORDER [None]
  - RENAL FAILURE [None]
